FAERS Safety Report 5818980-6 (Version None)
Quarter: 2008Q3

REPORT INFORMATION
  Report Type: 
  Country: None (occurrence: None)
  Receive Date: 20080717
  Receipt Date: 20080702
  Transmission Date: 20090109
  Serious: Yes (Hospitalization)
  Sender: FDA-Public Use
  Company Number: CIP08001007

PATIENT
  Age: 62 Year
  Sex: Female

DRUGS (9)
  1. RISEDRONATE SODIUM [Suspect]
     Indication: OSTEOPOROSIS
     Dosage: 2.5 MG ONCE DAILY, ORAL; 2.5 MG ONCE DAILY, ORAL
     Route: 048
     Dates: start: 20070616, end: 20070728
  2. RISEDRONATE SODIUM [Suspect]
     Indication: OSTEOPOROSIS
     Dosage: 2.5 MG ONCE DAILY, ORAL; 2.5 MG ONCE DAILY, ORAL
     Route: 048
     Dates: start: 20070821, end: 20071001
  3. CELECOXIB [Suspect]
     Indication: RHEUMATOID ARTHRITIS
     Dosage: 400 MG ONCE DAILY, ORAL
     Route: 048
     Dates: end: 20070728
  4. LANSOPRAZOLE [Concomitant]
  5. MEDROL/ 00049601/ (METHYLPREDNISOLONE) [Concomitant]
  6. ZOLPIDEM TARTRATE [Concomitant]
  7. ONEALFA (ALFACALCIDOL) [Concomitant]
  8. MUCOSTA (REBAMIPIDE) [Concomitant]
  9. RIMATIL (BUCILLAMINE) [Concomitant]

REACTIONS (5)
  - CONDITION AGGRAVATED [None]
  - DISCOMFORT [None]
  - LEUKOPENIA [None]
  - PAIN [None]
  - URTICARIA [None]
